FAERS Safety Report 7240717-7 (Version None)
Quarter: 2011Q1

REPORT INFORMATION
  Report Type: 
  Country: None (occurrence: None)
  Receive Date: 20110124
  Receipt Date: 20110113
  Transmission Date: 20110831
  Serious: Yes (Hospitalization)
  Sender: FDA-Public Use
  Company Number: BR-US-EMD SERONO, INC.-7024989

PATIENT
  Sex: Female

DRUGS (3)
  1. TENADREN [Concomitant]
  2. REBIF [Suspect]
     Indication: RELAPSING-REMITTING MULTIPLE SCLEROSIS
     Route: 058
     Dates: start: 20100322, end: 20100101
  3. REBIF [Suspect]
     Route: 058
     Dates: start: 20100101

REACTIONS (7)
  - MULTIPLE SCLEROSIS RELAPSE [None]
  - NERVOUSNESS [None]
  - VISUAL ACUITY REDUCED [None]
  - OPTIC NEURITIS [None]
  - DRUG INEFFECTIVE [None]
  - VISION BLURRED [None]
  - PAIN IN EXTREMITY [None]
